FAERS Safety Report 4486993-5 (Version None)
Quarter: 2004Q3

REPORT INFORMATION
  Report Type: 
  Country: None (occurrence: None)
  Receive Date: 20040921
  Receipt Date: 20040408
  Transmission Date: 20050211
  Serious: Yes (Hospitalization)
  Sender: FDA-Public Use
  Company Number: 163-20785-04040244

PATIENT
  Age: 74 Year
  Sex: Male

DRUGS (3)
  1. THALOMID [Suspect]
     Indication: PROSTATE CANCER
     Dosage: 150 MG DAILY ORAL
     Route: 048
     Dates: start: 20040215, end: 20040401
  2. THALOMID [Suspect]
     Indication: PROSTATE CANCER
     Dosage: 150 MG DAILY ORAL
     Route: 048
     Dates: start: 20040423
  3. WARFARIN SODIUM [Concomitant]

REACTIONS (5)
  - CONSTIPATION [None]
  - DEEP VEIN THROMBOSIS [None]
  - DIZZINESS [None]
  - PROSTATIC SPECIFIC ANTIGEN INCREASED [None]
  - SWELLING [None]
